FAERS Safety Report 6917374-X (Version None)
Quarter: 2010Q3

REPORT INFORMATION
  Report Type: 
  Country: None (occurrence: None)
  Receive Date: 20100810
  Receipt Date: 20090311
  Transmission Date: 20110219
  Serious: Yes (Death)
  Sender: FDA-Public Use
  Company Number: IL-CELGENEUS-082-C5013-08020568

PATIENT
  Sex: Female
  Weight: 56 kg

DRUGS (5)
  1. LENALIDOMIDE [Suspect]
     Route: 048
     Dates: start: 20061114, end: 20070909
  2. METOCLOPRAMIDE [Concomitant]
     Indication: NAUSEA
     Route: 051
     Dates: start: 20071016, end: 20080206
  3. DAUNORUBICIN HCL [Concomitant]
     Route: 065
     Dates: start: 20080110, end: 20080116
  4. CYTOSAR-U [Concomitant]
     Route: 065
     Dates: start: 20080110, end: 20080116
  5. PROSCAR [Concomitant]
     Route: 065

REACTIONS (2)
  - LEUKAEMIA [None]
  - MYELODYSPLASTIC SYNDROME TRANSFORMATION [None]
